FAERS Safety Report 10931517 (Version 11)
Quarter: 2023Q2

REPORT INFORMATION
  Report Type: Report from Study
  Country: JP (occurrence: JP)
  Receive Date: 20150319
  Receipt Date: 20230404
  Transmission Date: 20230721
  Serious: Yes (Life-Threatening, Hospitalization, Other)
  Sender: FDA-Public Use
  Company Number: JP-BRISTOL-MYERS SQUIBB COMPANY-BMS-2015-005203

PATIENT
  Age: 80 Year
  Sex: Male
  Weight: 55 kg

DRUGS (29)
  1. NIVOLUMAB [Suspect]
     Active Substance: NIVOLUMAB
     Indication: Malignant melanoma
     Dosage: 2 MG/KG=110MG, UNK
     Route: 041
     Dates: start: 20141006, end: 20141006
  2. NIVOLUMAB [Suspect]
     Active Substance: NIVOLUMAB
     Dosage: 2 MG/KG, UNK
     Route: 041
     Dates: start: 20141027, end: 20141027
  3. NIVOLUMAB [Suspect]
     Active Substance: NIVOLUMAB
     Dosage: 2 MG/KG, UNK
     Route: 041
     Dates: start: 20141117, end: 20141117
  4. NIVOLUMAB [Suspect]
     Active Substance: NIVOLUMAB
     Dosage: 2 MG/KG, UNK
     Route: 041
     Dates: start: 20141208, end: 20141208
  5. TAMIFLU [Suspect]
     Active Substance: OSELTAMIVIR PHOSPHATE
     Indication: Product used for unknown indication
     Dosage: 75 MG, QD
     Route: 048
     Dates: start: 20150121, end: 20150130
  6. SULFAMETHOXAZOLE\TRIMETHOPRIM [Suspect]
     Active Substance: SULFAMETHOXAZOLE\TRIMETHOPRIM
     Indication: Oral candidiasis
     Dosage: 1 DF, QD
     Route: 048
     Dates: start: 20150119, end: 20150122
  7. AMARYL [Concomitant]
     Active Substance: GLIMEPIRIDE
     Indication: Product used for unknown indication
     Dosage: UNK
  8. HUMALOG [Concomitant]
     Active Substance: INSULIN LISPRO
     Indication: Product used for unknown indication
     Dosage: UNK
  9. BUFFERIN [ACETYLSALICYLIC ACID] [Concomitant]
     Indication: Product used for unknown indication
     Dosage: 330 MG, UNK
  10. CRESTOR [Concomitant]
     Active Substance: ROSUVASTATIN CALCIUM
     Indication: Product used for unknown indication
  11. FUROSEMIDE [Concomitant]
     Active Substance: FUROSEMIDE
     Indication: Product used for unknown indication
  12. SPIRONOLACTONE [Concomitant]
     Active Substance: SPIRONOLACTONE
     Indication: Product used for unknown indication
  13. ALLOPURINOL [Concomitant]
     Active Substance: ALLOPURINOL
     Indication: Product used for unknown indication
  14. ISOSORBIDE DINITRATE [Concomitant]
     Active Substance: ISOSORBIDE DINITRATE
     Indication: Product used for unknown indication
  15. PREDONINE [Concomitant]
     Active Substance: PREDNISOLONE
     Indication: Product used for unknown indication
     Dosage: 30 MG, UNK
     Dates: start: 20150109, end: 20150118
  16. PREDONINE [Concomitant]
     Active Substance: PREDNISOLONE
     Dosage: 60 MG, UNK
     Dates: start: 20150119, end: 20150120
  17. PREDONINE [Concomitant]
     Active Substance: PREDNISOLONE
     Dosage: 50 MG, UNK
     Dates: start: 20150121, end: 20150121
  18. PREDONINE [Concomitant]
     Active Substance: PREDNISOLONE
     Dosage: 40 MG, UNK
     Dates: start: 20150122, end: 20150122
  19. PREDONINE [Concomitant]
     Active Substance: PREDNISOLONE
     Dosage: 30 MG, UNK
     Dates: start: 20150123, end: 20150123
  20. PREDONINE [Concomitant]
     Active Substance: PREDNISOLONE
     Dosage: 25 MG, UNK
     Dates: start: 20150127, end: 20150202
  21. PREDONINE [Concomitant]
     Active Substance: PREDNISOLONE
     Dosage: 20 MG, UNK
     Dates: start: 20150203, end: 20150206
  22. PREDONINE [Concomitant]
     Active Substance: PREDNISOLONE
     Dosage: 15 MG, UNK
     Dates: start: 20150207, end: 20150210
  23. PREDONINE [Concomitant]
     Active Substance: PREDNISOLONE
     Dosage: 10 MG, UNK
     Dates: start: 20150211, end: 20150215
  24. PREDONINE [Concomitant]
     Active Substance: PREDNISOLONE
     Dosage: 5 MG, UNK
     Dates: start: 20150216
  25. PREDONINE [Concomitant]
     Active Substance: PREDNISOLONE
     Dosage: UNK
     Dates: start: 201502, end: 20150225
  26. URSO [Concomitant]
     Active Substance: URSODIOL
     Indication: Product used for unknown indication
     Dosage: UNK
     Dates: start: 201501
  27. NEO MINOPHAGEN C [CYSTEINE HYDROCHLORIDE;GLYCINE;GLYCYRRHIZIC ACID, AM [Concomitant]
     Indication: Product used for unknown indication
     Dosage: UNK
     Dates: start: 201501
  28. RAPIACTA [Concomitant]
     Active Substance: PERAMIVIR
     Indication: Product used for unknown indication
     Dosage: UNK
     Dates: start: 20150105
  29. ADENOSINE TRIPHOSPHATE [Concomitant]
     Active Substance: ADENOSINE TRIPHOSPHATE
     Indication: Product used for unknown indication
     Dosage: UNK
     Dates: start: 20150109

REACTIONS (5)
  - Autoimmune colitis [Recovered/Resolved]
  - C-reactive protein increased [Unknown]
  - Hepatic enzyme increased [Not Recovered/Not Resolved]
  - Influenza [Recovered/Resolved]
  - Off label use [Unknown]

NARRATIVE: CASE EVENT DATE: 20141201
